FAERS Safety Report 9400329 (Version 3)
Quarter: 2013Q4

REPORT INFORMATION
  Report Type: Spontaneous
  Country: GB (occurrence: GB)
  Receive Date: 20130715
  Receipt Date: 20131030
  Transmission Date: 20140711
  Serious: Yes (Other)
  Sender: FDA-Public Use
  Company Number: PHHY2013GB072140

PATIENT
  Age: 90 Year
  Sex: Female

DRUGS (7)
  1. AMOXICILLIN [Suspect]
     Dosage: 500 MG, TID
     Route: 042
     Dates: start: 20110505, end: 20110508
  2. CO-AMOXICLAV [Suspect]
     Indication: NOSOCOMIAL INFECTION
     Dosage: 1.2 G, TID
     Route: 041
     Dates: start: 20110504, end: 20110504
  3. CO-AMOXICLAV [Suspect]
     Dosage: 1.2 G, TID 1000MG/200MG.STAT DOSE ONLY RECEIVED
     Route: 041
     Dates: start: 20110504, end: 20110504
  4. CIPROFLOXACIN [Suspect]
     Indication: NOSOCOMIAL INFECTION
     Dosage: 500 MG, BID (4 DOSES RECEIVED)
     Route: 048
     Dates: start: 20110512, end: 20110513
  5. CIPROFLOXACIN [Suspect]
     Dosage: 400 MG, BID 400MG/200ML. 4 DOSES BEFORE BEING SWITCHED BACK TO ORAL CIPROFLOXACIN
     Route: 041
     Dates: start: 20110509, end: 20110511
  6. OMEPRAZOLE [Concomitant]
     Dosage: 20 MG, QD
  7. OMEPRAZOLE [Concomitant]
     Dosage: ONGOING THERAPY. BEFORE AND THROUGHOUT ADMISSION

REACTIONS (6)
  - Gastroenteritis norovirus [Unknown]
  - Malaise [Recovering/Resolving]
  - Abdominal distension [Recovering/Resolving]
  - Pyrexia [Recovering/Resolving]
  - Clostridium difficile colitis [Recovering/Resolving]
  - Vomiting [Recovering/Resolving]
